FAERS Safety Report 5625489-1 (Version None)
Quarter: 2008Q1

REPORT INFORMATION
  Report Type: 
  Country: None (occurrence: None)
  Receive Date: 20080207
  Receipt Date: 20080124
  Transmission Date: 20080703
  Serious: Yes (Hospitalization)
  Sender: FDA-Public Use
  Company Number: B0506197A

PATIENT
  Age: 36 Year
  Sex: Male

DRUGS (3)
  1. ABACAVIR SULFATE [Suspect]
     Indication: HIV INFECTION
  2. LAMIVUDINE [Concomitant]
  3. LOPINAVIR AND RITONAVIR [Concomitant]

REACTIONS (4)
  - DRUG HYPERSENSITIVITY [None]
  - HEPATIC ENZYME INCREASED [None]
  - LEUKOCYTOSIS [None]
  - LYMPHADENOPATHY [None]
